FAERS Safety Report 9852041 (Version 2)
Quarter: 2014Q2

REPORT INFORMATION
  Report Type: Spontaneous
  Country: US (occurrence: US)
  Receive Date: 20140129
  Receipt Date: 20140418
  Transmission Date: 20141212
  Serious: Yes (Other)
  Sender: FDA-Public Use
  Company Number: US-PFIZER INC-2014021370

PATIENT
  Age: 71 Year
  Sex: Female
  Weight: 68.03 kg

DRUGS (3)
  1. QUINAPRIL HCL [Suspect]
     Indication: HYPERTENSION
     Dosage: 40 MG, 2X/DAY
     Dates: start: 2012
  2. ALLOPURINOL [Concomitant]
     Indication: GOUT
     Dosage: UNK, DAILY
  3. HYDROCODONE [Concomitant]
     Indication: FIBROMYALGIA
     Dosage: 4 DF, DAILY

REACTIONS (2)
  - Drug ineffective [Unknown]
  - Blood pressure fluctuation [Unknown]
